FAERS Safety Report 8150228-2 (Version None)
Quarter: 2012Q1

REPORT INFORMATION
  Report Type: 
  Country: None (occurrence: None)
  Receive Date: 20120220
  Receipt Date: 20120215
  Transmission Date: 20120608
  Serious: No
  Sender: FDA-Public Use
  Company Number: US-PFIZER INC-2012041505

PATIENT
  Sex: Female
  Weight: 91.156 kg

DRUGS (2)
  1. LYRICA [Suspect]
     Indication: NEUROPATHY PERIPHERAL
     Dosage: 75 MG, 3X/DAY
     Dates: start: 20120211
  2. GABAPENTIN [Suspect]
     Indication: NEUROPATHY PERIPHERAL
     Dosage: 1800 MG, DAILY

REACTIONS (2)
  - CHEST PAIN [None]
  - HEADACHE [None]
